FAERS Safety Report 16033216 (Version 1)
Quarter: 2019Q1

REPORT INFORMATION
  Report Type: Spontaneous
  Country: US (occurrence: US)
  Receive Date: 20190205
  Receipt Date: 20190205
  Transmission Date: 20190418
  Serious: Yes (Hospitalization)
  Sender: FDA-Public Use
  Company Number: None

PATIENT
  Age: 54 Year
  Sex: Female
  Weight: 71.2 kg

DRUGS (2)
  1. BEVACIZUMAB. [Suspect]
     Active Substance: BEVACIZUMAB
     Indication: GLIOBLASTOMA
     Route: 042
     Dates: start: 20180911, end: 20181218
  2. NIVOLUMAB 240MG [Suspect]
     Active Substance: NIVOLUMAB
     Indication: GLIOBLASTOMA
     Route: 042
     Dates: start: 20180911, end: 20181218

REACTIONS (3)
  - Seizure [None]
  - Muscle twitching [None]
  - Aphasia [None]

NARRATIVE: CASE EVENT DATE: 20190110
